FAERS Safety Report 17297432 (Version 2)
Quarter: 2022Q2

REPORT INFORMATION
  Report Type: Spontaneous
  Country: RO (occurrence: RO)
  Receive Date: 20200121
  Receipt Date: 20220607
  Transmission Date: 20220721
  Serious: Yes (Hospitalization, Disabling)
  Sender: FDA-Public Use
  Company Number: RO-NOVARTISPH-PHHY2019RO084127

PATIENT
  Age: 6 Year
  Sex: Female

DRUGS (12)
  1. DEXAMETHASONE [Suspect]
     Active Substance: DEXAMETHASONE
     Indication: Acute lymphocytic leukaemia
     Dosage: UNK
     Route: 065
  2. CYTARABINE [Suspect]
     Active Substance: CYTARABINE
     Indication: Acute lymphocytic leukaemia
     Dosage: UNK
     Route: 033
  3. ZOLEDRONIC ACID [Suspect]
     Active Substance: ZOLEDRONIC ACID
     Indication: Osteolysis
     Dosage: 2 MG
     Route: 042
  4. METHOTREXATE [Suspect]
     Active Substance: METHOTREXATE
     Indication: Product used for unknown indication
     Dosage: UNK
     Route: 065
  5. ETOPOSIDE [Suspect]
     Active Substance: ETOPOSIDE
     Indication: Acute lymphocytic leukaemia
     Dosage: ACCORDING TO ALL IC-BFM 2002 PROTOCOL:PI OVER 1 H,100 MG/QM,DAY 3-5: FIVE DOSES(12-HOUR INTERVALS)
     Route: 033
  6. ETOPOSIDE [Suspect]
     Active Substance: ETOPOSIDE
     Indication: Acute lymphocytic leukaemia recurrent
     Dosage: ACCORDING TO ALL IC-BFM 2002 REZ PROTOCOL
     Route: 033
  7. CLODRONATE DISODIUM [Suspect]
     Active Substance: CLODRONATE DISODIUM
     Indication: Osteolysis
     Dosage: UNK
     Route: 048
  8. PREDNISOLONE [Suspect]
     Active Substance: PREDNISOLONE
     Indication: Acute lymphocytic leukaemia
     Dosage: UNK
     Route: 037
  9. CALCITONIN [Suspect]
     Active Substance: CALCITONIN
     Indication: Hypercalcaemia
     Dosage: 4 UI/KG EVERY 12 HOURS
     Route: 030
  10. ASPARAGINASE [Suspect]
     Active Substance: ASPARAGINASE
     Indication: Acute lymphocytic leukaemia
     Dosage: UNK
     Route: 033
  11. FUROSEMIDE [Concomitant]
     Active Substance: FUROSEMIDE
     Indication: Hypercalcaemia
     Dosage: STARTING WITH 1 MG/KG/DAY, AND THEN UP TO 3 MG/KG/DAY
     Route: 065
  12. FUROSEMIDE [Concomitant]
     Active Substance: FUROSEMIDE
     Dosage: STARTING WITH 1 MG/KG/DAY, AND THEN UP TO 3 MG/KG/DAY
     Route: 065

REACTIONS (12)
  - Hypocalcaemia [Recovered/Resolved]
  - Pathological fracture [Recovered/Resolved]
  - Disease progression [Not Recovered/Not Resolved]
  - Vision blurred [Unknown]
  - Blood calcium increased [Recovered/Resolved]
  - Malaise [Unknown]
  - Drug ineffective for unapproved indication [Recovered/Resolved]
  - Vomiting [Unknown]
  - Diarrhoea [Unknown]
  - Osteolysis [Unknown]
  - Leukaemia recurrent [Not Recovered/Not Resolved]
  - Product use in unapproved indication [Unknown]
